FAERS Safety Report 5123477-5 (Version None)
Quarter: 2006Q4

REPORT INFORMATION
  Report Type: 
  Country: None (occurrence: None)
  Receive Date: 20061009
  Receipt Date: 20060929
  Transmission Date: 20070319
  Serious: Yes (Hospitalization, Disabling)
  Sender: FDA-Public Use
  Company Number: CH-ABBOTT-06P-151-0345407-00

PATIENT
  Age: 41 Year
  Sex: Female
  Weight: 103 kg

DRUGS (9)
  1. DEPAKENE [Suspect]
     Indication: DRUG USE FOR UNKNOWN INDICATION
     Route: 048
     Dates: start: 20010601, end: 20011013
  2. DEPAKENE [Suspect]
     Dates: start: 20031014
  3. DEPAKENE [Suspect]
     Dates: start: 20030901, end: 20060606
  4. DEPAKENE [Suspect]
  5. RISPERIDONE [Concomitant]
     Indication: DRUG USE FOR UNKNOWN INDICATION
     Route: 048
     Dates: start: 20050930, end: 20051002
  6. RISPERIDONE [Concomitant]
     Route: 048
     Dates: start: 20051003, end: 20060501
  7. RISPERIDONE [Concomitant]
     Route: 048
     Dates: start: 20060502, end: 20060531
  8. ELTROXIN [Concomitant]
     Indication: HYPOTHYROIDISM
     Route: 048
     Dates: start: 20030101
  9. VENLAFAXIINE HCL [Concomitant]
     Indication: DRUG USE FOR UNKNOWN INDICATION
     Dates: start: 20060401

REACTIONS (2)
  - HOSPITALISATION [None]
  - WEIGHT INCREASED [None]
